FAERS Safety Report 25679262 (Version 1)
Quarter: 2025Q3

REPORT INFORMATION
  Report Type: Spontaneous
  Country: US (occurrence: US)
  Receive Date: 20250814
  Receipt Date: 20250814
  Transmission Date: 20251021
  Serious: Yes (Other)
  Sender: UROGEN PHARMA
  Company Number: US-UROGEN PHARMA LTD.-2025-UGN-000117

PATIENT

DRUGS (5)
  1. JELMYTO [Suspect]
     Active Substance: MITOMYCIN
     Indication: Transitional cell cancer of the renal pelvis and ureter
     Dates: start: 20250515, end: 20250515
  2. JELMYTO [Suspect]
     Active Substance: MITOMYCIN
     Dates: start: 20250522, end: 20250522
  3. JELMYTO [Suspect]
     Active Substance: MITOMYCIN
     Dates: start: 2025, end: 2025
  4. JELMYTO [Suspect]
     Active Substance: MITOMYCIN
     Dates: start: 20250612, end: 20250612
  5. JELMYTO [Suspect]
     Active Substance: MITOMYCIN
     Dates: start: 20250620, end: 20250620

REACTIONS (6)
  - Ureteric stenosis [Unknown]
  - Fatigue [Recovered/Resolved]
  - Fatigue [Recovered/Resolved]
  - Fatigue [Recovered/Resolved]
  - Device dislocation [Recovered/Resolved]
  - Urinary tract infection [Recovering/Resolving]

NARRATIVE: CASE EVENT DATE: 20250518
